FAERS Safety Report 14213829 (Version 3)
Quarter: 2018Q1

REPORT INFORMATION
  Report Type: Spontaneous
  Country: US (occurrence: US)
  Receive Date: 20171122
  Receipt Date: 20180301
  Transmission Date: 20180508
  Serious: Yes (Other)
  Sender: FDA-Public Use
  Company Number: US-BAYER-2017-225978

PATIENT
  Age: 28 Year
  Sex: Female
  Weight: 94.33 kg

DRUGS (3)
  1. MIRENA [Suspect]
     Active Substance: LEVONORGESTREL
     Indication: CONTRACEPTION
  2. TYLENOL WITH CODEINE [Suspect]
     Active Substance: ACETAMINOPHEN\CODEINE PHOSPHATE
     Indication: PELVIC PAIN
  3. MIRENA [Suspect]
     Active Substance: LEVONORGESTREL
     Indication: CONTRACEPTION
     Dosage: 20 MCG/24HR, CONT
     Route: 015
     Dates: start: 20171031, end: 20171108

REACTIONS (6)
  - Device issue [None]
  - Polycystic ovaries [Recovered/Resolved]
  - Pelvic pain [None]
  - Abdominal pain lower [None]
  - Post procedural haemorrhage [None]
  - Device dislocation [None]

NARRATIVE: CASE EVENT DATE: 20171106
